FAERS Safety Report 24049888 (Version 2)
Quarter: 2024Q3

REPORT INFORMATION
  Report Type: Spontaneous
  Country: TR (occurrence: TR)
  Receive Date: 20240704
  Receipt Date: 20240801
  Transmission Date: 20241017
  Serious: Yes (Hospitalization, Other)
  Sender: AMGEN
  Company Number: TR-AMGEN-TURSP2024126412

PATIENT
  Sex: Female

DRUGS (1)
  1. NPLATE [Suspect]
     Active Substance: ROMIPLOSTIM
     Indication: Immune thrombocytopenia
     Dosage: UNK UNK, QWK (1 DAYS A WEEK )
     Route: 065
     Dates: start: 20240620, end: 20240624

REACTIONS (4)
  - Incorrect dose administered [Unknown]
  - Platelet count decreased [Unknown]
  - Platelet count increased [Unknown]
  - Epistaxis [Unknown]
